FAERS Safety Report 23982422 (Version 1)
Quarter: 2024Q2

REPORT INFORMATION
  Report Type: Report from Study
  Country: US (occurrence: US)
  Receive Date: 20240617
  Receipt Date: 20240617
  Transmission Date: 20240716
  Serious: Yes (Other)
  Sender: FDA-Public Use
  Company Number: US-ALNYLAM PHARMACEUTICALS, INC.-ALN-2024-003332

PATIENT

DRUGS (1)
  1. AMVUTTRA [Suspect]
     Active Substance: VUTRISIRAN
     Indication: Hereditary neuropathic amyloidosis
     Dosage: UNK
     Route: 065
     Dates: start: 20230221, end: 20230221

REACTIONS (10)
  - Transient ischaemic attack [Unknown]
  - Feeling abnormal [Unknown]
  - Pain [Unknown]
  - Fatigue [Unknown]
  - Sleep disorder [Unknown]
  - Condition aggravated [Unknown]
  - Memory impairment [Unknown]
  - Muscle twitching [Unknown]
  - Muscle spasms [Unknown]
  - Balance disorder [Unknown]
